FAERS Safety Report 7761372-3 (Version None)
Quarter: 2011Q3

REPORT INFORMATION
  Report Type: 
  Country: None (occurrence: None)
  Receive Date: 20110920
  Receipt Date: 20110914
  Transmission Date: 20111222
  Serious: No
  Sender: FDA-Public Use
  Company Number: US-PFIZER INC-2011218356

PATIENT
  Sex: Male

DRUGS (1)
  1. SUTENT [Suspect]
     Dosage: 50 MG, 1X/DAY (50MG, DAILY FOR 4 WKS FOLLOWED BY 2 WKS OFF)
     Dates: start: 20110902

REACTIONS (2)
  - RASH [None]
  - PRURITUS [None]
